FAERS Safety Report 8163125-3 (Version None)
Quarter: 2012Q1

REPORT INFORMATION
  Report Type: 
  Country: None (occurrence: None)
  Receive Date: 20120224
  Receipt Date: 20120214
  Transmission Date: 20120608
  Serious: Yes (Death, Other)
  Sender: FDA-Public Use
  Company Number: US-BAYER-200940199NA

PATIENT
  Age: 20 Year
  Sex: Female
  Weight: 43.537 kg

DRUGS (26)
  1. MILRINONE [Concomitant]
     Dosage: UNK
     Dates: start: 20021001, end: 20021001
  2. NIPRIDE [Concomitant]
     Dosage: UNK
     Dates: start: 20021001, end: 20021001
  3. ANCEF [Concomitant]
     Dosage: UNK
     Dates: start: 20021001, end: 20021001
  4. LASIX [Concomitant]
     Dosage: UNK
  5. RAPAMUNE [Concomitant]
  6. FENTANYL [Concomitant]
  7. RED BLOOD CELLS [Concomitant]
     Dosage: 2 U, UNK
     Dates: start: 20021001
  8. TRASYLOL [Suspect]
     Indication: CORONARY ARTERY BYPASS
     Dosage: 1 ML INITIAL DOSE, 200 ML LOADING DOSE AND 30CC/HR INFUSION
     Route: 042
     Dates: start: 20021001, end: 20021002
  9. CARVEDILOL [Concomitant]
     Dosage: UNK
  10. EDECRIN [Concomitant]
  11. ENALAPRIL MALEATE [Concomitant]
     Dosage: UNK
  12. VALGANCICLOVIR [Concomitant]
  13. CYCLOSPORINE [Concomitant]
     Dosage: UNK
  14. VERSED [Concomitant]
     Dosage: UNK
     Dates: start: 20021001, end: 20021001
  15. ACYCLOVIR [Concomitant]
  16. AMOXICILLIN [Concomitant]
  17. DOPAMINE HCL [Concomitant]
     Dosage: UNK
     Dates: start: 20021001, end: 20021001
  18. VECURONIUM BROMIDE [Concomitant]
     Dosage: UNK
     Dates: start: 20021001, end: 20021001
  19. ACETYLSALICYLIC ACID SRT [Concomitant]
     Dosage: UNK
  20. DIGOXIN [Concomitant]
  21. NYSTATIN [Concomitant]
     Dosage: UNK
  22. PREDNISONE [Concomitant]
  23. HEPARIN [Concomitant]
     Dosage: UNK
     Dates: start: 20021001, end: 20021001
  24. TRASYLOL [Suspect]
     Indication: VENTRICULAR ASSIST DEVICE INSERTION
  25. HYDRALAZINE HCL [Concomitant]
  26. NEORAL [Concomitant]

REACTIONS (14)
  - RENAL FAILURE [None]
  - EMOTIONAL DISTRESS [None]
  - ANXIETY [None]
  - UNEVALUABLE EVENT [None]
  - FEAR [None]
  - RENAL INJURY [None]
  - RENAL IMPAIRMENT [None]
  - INJURY [None]
  - DEPRESSION [None]
  - STRESS [None]
  - MULTI-ORGAN FAILURE [None]
  - DEATH [None]
  - ANHEDONIA [None]
  - PAIN [None]
